FAERS Safety Report 23432864 (Version 1)
Quarter: 2024Q1

REPORT INFORMATION
  Report Type: Spontaneous
  Country: US (occurrence: US)
  Receive Date: 20240123
  Receipt Date: 20240123
  Transmission Date: 20240410
  Serious: No
  Sender: FDA-Public Use
  Company Number: US-ALNYLAM PHARMACEUTICALS, INC.-ALN-2024-000321

PATIENT

DRUGS (1)
  1. AMVUTTRA [Suspect]
     Active Substance: VUTRISIRAN
     Indication: Cardiac amyloidosis
     Dosage: UNK
     Route: 065
     Dates: start: 202310

REACTIONS (1)
  - Gait disturbance [Unknown]

NARRATIVE: CASE EVENT DATE: 20230101
